FAERS Safety Report 5118523-9 (Version None)
Quarter: 2006Q3

REPORT INFORMATION
  Report Type: 
  Country: None (occurrence: None)
  Receive Date: 20060927
  Receipt Date: 20060915
  Transmission Date: 20061208
  Serious: Yes (Life-Threatening)
  Sender: FDA-Public Use
  Company Number: 2006111455

PATIENT
  Age: 78 Year
  Sex: Male

DRUGS (2)
  1. AMLODIPINE [Suspect]
     Indication: HYPERTENSION
     Dosage: 5 MG (5 MG, FREQUENCY:  QD), ORAL
     Route: 048
  2. AMBROXOL (AMBROXOL) [Concomitant]

REACTIONS (1)
  - ATRIOVENTRICULAR BLOCK THIRD DEGREE [None]
